FAERS Safety Report 7714694-6 (Version None)
Quarter: 2011Q3

REPORT INFORMATION
  Report Type: 
  Country: None (occurrence: None)
  Receive Date: 20110804
  Receipt Date: 20110510
  Transmission Date: 20111222
  Serious: No
  Sender: FDA-Public Use
  Company Number: 2011-06414

PATIENT
  Age: 88 Year
  Sex: Male
  Weight: 77.1 kg

DRUGS (2)
  1. RAPAFLO [Suspect]
     Indication: NOCTURIA
     Dosage: ONE CAPSULE AS NEEDED WITH MEALS (PRESCRIBED BY PHYSICIAN TO TAKE ON DAILY), ORAL
     Route: 048
     Dates: start: 20110401
  2. WARFARIN SODIUM [Concomitant]

REACTIONS (4)
  - INAPPROPRIATE SCHEDULE OF DRUG ADMINISTRATION [None]
  - CHROMATURIA [None]
  - BLOOD URINE PRESENT [None]
  - URINE ABNORMALITY [None]
